FAERS Safety Report 25535456 (Version 1)
Quarter: 2025Q3

REPORT INFORMATION
  Report Type: Spontaneous
  Country: EU (occurrence: EU)
  Receive Date: 20250709
  Receipt Date: 20250709
  Transmission Date: 20251020
  Serious: Yes (Hospitalization, Other)
  Sender: MYLAN
  Company Number: EU-KERNPHARMA-202501729

PATIENT
  Age: 9 Year
  Sex: Female

DRUGS (48)
  1. SERTRALINE [Suspect]
     Active Substance: SERTRALINE HYDROCHLORIDE
     Indication: Attention deficit hyperactivity disorder
     Dosage: 150 MILLIGRAM, QD
  2. SERTRALINE [Suspect]
     Active Substance: SERTRALINE HYDROCHLORIDE
     Indication: Self-destructive behaviour
     Dosage: 150 MILLIGRAM, QD
     Route: 065
  3. SERTRALINE [Suspect]
     Active Substance: SERTRALINE HYDROCHLORIDE
     Dosage: 150 MILLIGRAM, QD
     Route: 065
  4. SERTRALINE [Suspect]
     Active Substance: SERTRALINE HYDROCHLORIDE
     Dosage: 150 MILLIGRAM, QD
  5. FLUOXETINE [Suspect]
     Active Substance: FLUOXETINE HYDROCHLORIDE
     Indication: Attention deficit hyperactivity disorder
  6. FLUOXETINE [Suspect]
     Active Substance: FLUOXETINE HYDROCHLORIDE
     Indication: Self-destructive behaviour
     Route: 065
  7. FLUOXETINE [Suspect]
     Active Substance: FLUOXETINE HYDROCHLORIDE
     Route: 065
  8. FLUOXETINE [Suspect]
     Active Substance: FLUOXETINE HYDROCHLORIDE
  9. TOPIRAMATE [Interacting]
     Active Substance: TOPIRAMATE
     Indication: Attention deficit hyperactivity disorder
     Dosage: 95 MILLIGRAM, QD
  10. TOPIRAMATE [Interacting]
     Active Substance: TOPIRAMATE
     Indication: Self-destructive behaviour
     Dosage: 95 MILLIGRAM, QD
     Route: 065
  11. TOPIRAMATE [Interacting]
     Active Substance: TOPIRAMATE
     Dosage: 95 MILLIGRAM, QD
     Route: 065
  12. TOPIRAMATE [Interacting]
     Active Substance: TOPIRAMATE
     Dosage: 95 MILLIGRAM, QD
  13. ARIPIPRAZOLE [Interacting]
     Active Substance: ARIPIPRAZOLE
     Indication: Attention deficit hyperactivity disorder
     Dosage: 10 MILLIGRAM, QD
  14. ARIPIPRAZOLE [Interacting]
     Active Substance: ARIPIPRAZOLE
     Indication: Self-destructive behaviour
     Dosage: 10 MILLIGRAM, QD
     Route: 065
  15. ARIPIPRAZOLE [Interacting]
     Active Substance: ARIPIPRAZOLE
     Dosage: 10 MILLIGRAM, QD
     Route: 065
  16. ARIPIPRAZOLE [Interacting]
     Active Substance: ARIPIPRAZOLE
     Dosage: 10 MILLIGRAM, QD
  17. VALPROATE [Suspect]
     Active Substance: VALPROIC ACID
     Indication: Attention deficit hyperactivity disorder
  18. VALPROATE [Suspect]
     Active Substance: VALPROIC ACID
     Indication: Self-destructive behaviour
     Route: 065
  19. VALPROATE [Suspect]
     Active Substance: VALPROIC ACID
     Route: 065
  20. VALPROATE [Suspect]
     Active Substance: VALPROIC ACID
  21. RISPERIDONE [Suspect]
     Active Substance: RISPERIDONE
     Indication: Attention deficit hyperactivity disorder
  22. RISPERIDONE [Suspect]
     Active Substance: RISPERIDONE
     Indication: Self-destructive behaviour
     Route: 065
  23. RISPERIDONE [Suspect]
     Active Substance: RISPERIDONE
     Route: 065
  24. RISPERIDONE [Suspect]
     Active Substance: RISPERIDONE
  25. CLOMIPRAMINE [Suspect]
     Active Substance: CLOMIPRAMINE
     Indication: Attention deficit hyperactivity disorder
  26. CLOMIPRAMINE [Suspect]
     Active Substance: CLOMIPRAMINE
     Indication: Self-destructive behaviour
     Route: 065
  27. CLOMIPRAMINE [Suspect]
     Active Substance: CLOMIPRAMINE
     Route: 065
  28. CLOMIPRAMINE [Suspect]
     Active Substance: CLOMIPRAMINE
  29. METHYLPHENIDATE [Suspect]
     Active Substance: METHYLPHENIDATE
     Indication: Attention deficit hyperactivity disorder
  30. METHYLPHENIDATE [Suspect]
     Active Substance: METHYLPHENIDATE
     Indication: Self-destructive behaviour
     Route: 065
  31. METHYLPHENIDATE [Suspect]
     Active Substance: METHYLPHENIDATE
     Route: 065
  32. METHYLPHENIDATE [Suspect]
     Active Substance: METHYLPHENIDATE
  33. CLOZAPINE [Suspect]
     Active Substance: CLOZAPINE
     Indication: Attention deficit hyperactivity disorder
     Dosage: 150 MILLIGRAM, QD
  34. CLOZAPINE [Suspect]
     Active Substance: CLOZAPINE
     Indication: Self-destructive behaviour
     Dosage: 150 MILLIGRAM, QD
     Route: 065
  35. CLOZAPINE [Suspect]
     Active Substance: CLOZAPINE
     Dosage: 150 MILLIGRAM, QD
     Route: 065
  36. CLOZAPINE [Suspect]
     Active Substance: CLOZAPINE
     Dosage: 150 MILLIGRAM, QD
  37. NALMEFENE [Suspect]
     Active Substance: NALMEFENE
     Indication: Attention deficit hyperactivity disorder
  38. NALMEFENE [Suspect]
     Active Substance: NALMEFENE
     Indication: Self-destructive behaviour
     Route: 065
  39. NALMEFENE [Suspect]
     Active Substance: NALMEFENE
     Route: 065
  40. NALMEFENE [Suspect]
     Active Substance: NALMEFENE
  41. CHLORPROMAZINE [Suspect]
     Active Substance: CHLORPROMAZINE
     Indication: Attention deficit hyperactivity disorder
  42. CHLORPROMAZINE [Suspect]
     Active Substance: CHLORPROMAZINE
     Indication: Self-destructive behaviour
     Route: 065
  43. CHLORPROMAZINE [Suspect]
     Active Substance: CHLORPROMAZINE
     Route: 065
  44. CHLORPROMAZINE [Suspect]
     Active Substance: CHLORPROMAZINE
  45. GUANFACINE [Suspect]
     Active Substance: GUANFACINE
     Indication: Attention deficit hyperactivity disorder
  46. GUANFACINE [Suspect]
     Active Substance: GUANFACINE
     Indication: Self-destructive behaviour
     Route: 065
  47. GUANFACINE [Suspect]
     Active Substance: GUANFACINE
     Route: 065
  48. GUANFACINE [Suspect]
     Active Substance: GUANFACINE

REACTIONS (6)
  - Self-destructive behaviour [Unknown]
  - Attention deficit hyperactivity disorder [Unknown]
  - Condition aggravated [Unknown]
  - Inhibitory drug interaction [Unknown]
  - Drug ineffective [Unknown]
  - Off label use [Unknown]
